APPROVED DRUG PRODUCT: AZITHROMYCIN
Active Ingredient: AZITHROMYCIN
Strength: EQ 250MG BASE
Dosage Form/Route: TABLET;ORAL
Application: A208250 | Product #001 | TE Code: AB
Applicant: CSPC OUYI PHARMACEUTICAL CO LTD
Approved: Apr 17, 2019 | RLD: No | RS: No | Type: RX